FAERS Safety Report 10981783 (Version 1)
Quarter: 2015Q1

REPORT INFORMATION
  Report Type: Spontaneous
  Country: US (occurrence: None)
  Receive Date: 20150227
  Receipt Date: 20150227
  Transmission Date: 20150721
  Serious: Yes (Other)
  Sender: FDA-Public Use
  Company Number: LMI-2014-00062

PATIENT
  Age: 76 Year
  Sex: Female
  Weight: 60.2 kg

DRUGS (6)
  1. DEFINITY [Suspect]
     Active Substance: PERFLUTREN
     Indication: ECHOCARDIOGRAM
     Dosage: 2 ML (1.3 ML DEFINITY DILUTED IN 8.7 ML NORMAL SALINE)
     Route: 040
     Dates: start: 20140211, end: 20140211
  2. HEPARIN [Concomitant]
     Active Substance: HEPARIN SODIUM
  3. ZOFRAN [Concomitant]
     Active Substance: ONDANSETRON HYDROCHLORIDE
  4. PANTOPRAZOLE [Concomitant]
     Active Substance: PANTOPRAZOLE SODIUM
  5. MORPHINE [Concomitant]
     Active Substance: MORPHINE
  6. NITROGLYCERINE (GLYCERYL TRINITRATE) [Concomitant]

REACTIONS (1)
  - Seizure [None]

NARRATIVE: CASE EVENT DATE: 20140211
